FAERS Safety Report 8435805-3 (Version None)
Quarter: 2012Q2

REPORT INFORMATION
  Report Type: 
  Country: None (occurrence: None)
  Receive Date: 20120608
  Receipt Date: 20120524
  Transmission Date: 20120825
  Serious: Yes (Disabling, Other)
  Sender: FDA-Public Use
  Company Number: ENTC2012-0219

PATIENT
  Age: 59 Year
  Sex: Male

DRUGS (3)
  1. TRAZODONE HCL [Concomitant]
  2. MIRAPEX [Concomitant]
  3. STALEVO 50 [Suspect]
     Indication: PARKINSON'S DISEASE
     Dosage: FIVE TABLETS PER DAY, STRENGTH: ORAL
     Route: 048
     Dates: start: 20050101

REACTIONS (5)
  - PRODUCT QUALITY ISSUE [None]
  - MUSCULOSKELETAL STIFFNESS [None]
  - GAIT DISTURBANCE [None]
  - MOVEMENT DISORDER [None]
  - PRODUCT PACKAGING ISSUE [None]
